FAERS Safety Report 13460120 (Version 6)
Quarter: 2018Q3

REPORT INFORMATION
  Report Type: Spontaneous
  Country: DE (occurrence: DE)
  Receive Date: 20170420
  Receipt Date: 20180718
  Transmission Date: 20181010
  Serious: Yes (Hospitalization, Other)
  Sender: FDA-Public Use
  Company Number: DE-BRISTOL-MYERS SQUIBB COMPANY-BMS-2017-030492

PATIENT
  Age: 63 Year
  Sex: Female

DRUGS (1)
  1. OPDIVO [Suspect]
     Active Substance: NIVOLUMAB
     Indication: NON-SMALL CELL LUNG CANCER METASTATIC
     Dosage: 3 MG/KG, UNK
     Route: 042
     Dates: start: 201604, end: 201608

REACTIONS (8)
  - Vasculitis [Unknown]
  - Skin disorder [Unknown]
  - Eczema [Unknown]
  - Pruritus [Unknown]
  - Skin toxicity [Recovering/Resolving]
  - Nail dystrophy [Recovering/Resolving]
  - Malignant neoplasm progression [Unknown]
  - Purpura [Unknown]

NARRATIVE: CASE EVENT DATE: 201608
